FAERS Safety Report 7310872-9 (Version None)
Quarter: 2011Q1

REPORT INFORMATION
  Report Type: 
  Country: None (occurrence: None)
  Receive Date: 20110224
  Receipt Date: 20110214
  Transmission Date: 20110831
  Serious: Yes (Other)
  Sender: FDA-Public Use
  Company Number: US-JNJFOC-20101100253

PATIENT
  Sex: Female
  Weight: 61.24 kg

DRUGS (6)
  1. FOLIC ACID [Concomitant]
     Route: 065
  2. REMICADE [Suspect]
     Indication: RHEUMATOID ARTHRITIS
     Route: 042
  3. HYDROCHLOROTHIAZIDE [Concomitant]
     Route: 065
  4. METHOTREXATE [Concomitant]
     Indication: RHEUMATOID ARTHRITIS
     Route: 065
  5. LISINOPRIL [Concomitant]
     Indication: BLOOD PRESSURE
     Route: 065
  6. ATENOLOL [Concomitant]
     Indication: BLOOD PRESSURE
     Route: 065

REACTIONS (2)
  - AGEUSIA [None]
  - ANOSMIA [None]
